FAERS Safety Report 4878607-7 (Version None)
Quarter: 2006Q1

REPORT INFORMATION
  Report Type: 
  Country: None (occurrence: None)
  Receive Date: 20060110
  Receipt Date: 20051227
  Transmission Date: 20060701
  Serious: Yes (Hospitalization)
  Sender: FDA-Public Use
  Company Number: PAR_0453_2005

PATIENT
  Age: 77 Year
  Sex: Male
  Weight: 78.0187 kg

DRUGS (18)
  1. LISINOPRIL [Suspect]
     Dosage: DF
     Dates: start: 20030108, end: 20050908
  2. PLACEBO [Suspect]
     Indication: BENIGN PROSTATIC HYPERPLASIA
     Dosage: DF QD PO
     Route: 048
     Dates: start: 20050906, end: 20050908
  3. ZETIA [Suspect]
     Dosage: 10 MG QD PO
     Route: 048
     Dates: start: 20030829, end: 20050909
  4. DEPAKOTE [Concomitant]
  5. VIAGRA [Concomitant]
  6. ATENOLOL [Concomitant]
  7. AMIODARONE HCL [Concomitant]
  8. ZOCOR [Concomitant]
  9. LEVOTHYROXINE SODIUM [Concomitant]
  10. POATSSIUM CHLORIDE [Concomitant]
  11. FUROSEMIDE [Concomitant]
  12. COZAAR [Concomitant]
  13. DIVALPROEX SODIUM [Concomitant]
  14. MAGNESIUM [Concomitant]
  15. IRON [Concomitant]
  16. VITAMIN B COMPLEX CAP [Concomitant]
  17. GLUCOSAMINE [Concomitant]
  18. CALCIUM W/MAGNESIUM [Concomitant]

REACTIONS (12)
  - ABASIA [None]
  - BLOOD PRESSURE SYSTOLIC DECREASED [None]
  - DIZZINESS [None]
  - FALL [None]
  - GROIN PAIN [None]
  - HAEMATURIA [None]
  - HEAD INJURY [None]
  - JOINT INJURY [None]
  - MUSCLE HAEMORRHAGE [None]
  - NECK PAIN [None]
  - POLYTRAUMATISM [None]
  - SYNCOPE [None]
